FAERS Safety Report 8947910 (Version 1)
Quarter: 2012Q4

REPORT INFORMATION
  Report Type: 
  Country: US (occurrence: US)
  Receive Date: 20121204
  Receipt Date: 20121204
  Transmission Date: 20130627
  Serious: Yes (Other)
  Sender: FDA-Public Use
  Company Number: US-ASTRAZENECA-2010SE53074

PATIENT
  Age: 49 Year
  Sex: Female

DRUGS (1)
  1. NEXIUM [Suspect]
     Route: 048

REACTIONS (7)
  - Ulcer haemorrhage [Unknown]
  - Perforated ulcer [Unknown]
  - Arthritis [Unknown]
  - Hypoacusis [Unknown]
  - Nasopharyngitis [Unknown]
  - Malaise [Unknown]
  - Drug dose omission [Unknown]
